FAERS Safety Report 7118700-1 (Version None)
Quarter: 2010Q4

REPORT INFORMATION
  Report Type: 
  Country: None (occurrence: None)
  Receive Date: 20101123
  Receipt Date: 20101118
  Transmission Date: 20110411
  Serious: Yes (Other)
  Sender: FDA-Public Use
  Company Number: US-PFIZER INC-2010152217

PATIENT
  Sex: Female
  Weight: 61 kg

DRUGS (2)
  1. ESTRING [Suspect]
     Indication: VULVOVAGINAL DRYNESS
     Dosage: UNK
     Route: 067
     Dates: start: 20101110, end: 20101101
  2. VITAMINS [Concomitant]
     Dosage: UNK

REACTIONS (2)
  - VAGINAL HAEMORRHAGE [None]
  - VULVOVAGINAL PAIN [None]
